FAERS Safety Report 6786207-7 (Version None)
Quarter: 2010Q2

REPORT INFORMATION
  Report Type: 
  Country: None (occurrence: None)
  Receive Date: 20100623
  Receipt Date: 20100623
  Transmission Date: 20101027
  Serious: Yes (Hospitalization)
  Sender: FDA-Public Use
  Company Number: DE-B.I. PHARMACEUTICALS,INC./RIDGEFIELD-2010-DE-02866DE

PATIENT
  Sex: Male
  Weight: 75 kg

DRUGS (2)
  1. MICARDIS HCT [Suspect]
     Dosage: 80 MG TELMISARTAN + 12.5 MG HYDROCHLOROTHIAZIDE
     Route: 048
  2. DIAZEPAM 5 [Suspect]
     Dosage: 5 MG
     Route: 048

REACTIONS (3)
  - HYPOTENSION [None]
  - SOMNOLENCE [None]
  - SUICIDE ATTEMPT [None]
